FAERS Safety Report 6885873-5 (Version None)
Quarter: 2010Q3

REPORT INFORMATION
  Report Type: 
  Country: None (occurrence: None)
  Receive Date: 20100729
  Receipt Date: 20080130
  Transmission Date: 20110219
  Serious: Yes (Other)
  Sender: FDA-Public Use
  Company Number: US-PFIZER INC-2007099176

PATIENT
  Sex: Male

DRUGS (5)
  1. CELEBREX [Suspect]
     Indication: ARTHRITIS
     Route: 048
     Dates: start: 20060801, end: 20070901
  2. CELEBREX [Suspect]
     Indication: OSTEOARTHRITIS
  3. ATENOLOL [Concomitant]
  4. TERAZOSIN HCL [Concomitant]
  5. WARFARIN [Concomitant]

REACTIONS (1)
  - PANCREATITIS [None]
